FAERS Safety Report 9157802 (Version 2)
Quarter: 2013Q1

REPORT INFORMATION
  Report Type: Spontaneous
  Country: JP (occurrence: JP)
  Receive Date: 20130312
  Receipt Date: 20130325
  Transmission Date: 20140127
  Serious: Yes (Other)
  Sender: FDA-Public Use
  Company Number: JP-ELI_LILLY_AND_COMPANY-JP201303001709

PATIENT
  Age: 76 Year
  Sex: Female

DRUGS (15)
  1. FORTEO [Suspect]
     Indication: OSTEOPOROSIS
     Dosage: 20 UG, QD
     Route: 058
     Dates: start: 20130125, end: 20130220
  2. BLOPRESS [Concomitant]
     Dosage: 4 MG, QD
  3. MEVALOTIN [Concomitant]
     Dosage: 5 MG, QD
     Route: 048
  4. ZANTAC [Concomitant]
     Dosage: 150 MG, QD
     Route: 048
  5. EUGLUCON [Concomitant]
     Dosage: 2.5 MG, QD
     Route: 048
  6. AMLODIN [Concomitant]
     Dosage: 2.5 MG, QD
     Route: 048
  7. CARDENALIN [Concomitant]
     Dosage: 1 MG, QD
     Route: 048
  8. METFORMIN HYDROCHLORIDE [Concomitant]
     Dosage: 500 MG, BID
     Route: 048
  9. ALUSA [Concomitant]
     Dosage: 300 MG, TID
     Route: 048
  10. VOGLIBOSE [Concomitant]
     Dosage: 0.6 MG, TID
     Route: 048
  11. MARZULENE S [Concomitant]
     Dosage: 1.5 G, TID
     Route: 048
  12. ZEPOLAS [Concomitant]
     Indication: PAIN PROPHYLAXIS
     Dosage: UNK
  13. CARNACULIN [Concomitant]
     Dosage: 3 DF, TID
     Route: 048
  14. RYSMON [Concomitant]
     Dosage: UNK
     Route: 047
  15. TRAVATANZ [Concomitant]
     Route: 047

REACTIONS (1)
  - Breast cancer [Unknown]
